FAERS Safety Report 6582056-3 (Version None)
Quarter: 2010Q1

REPORT INFORMATION
  Report Type: 
  Country: None (occurrence: None)
  Receive Date: 20100215
  Receipt Date: 20100204
  Transmission Date: 20100710
  Serious: Yes (Death, Hospitalization, Other)
  Sender: FDA-Public Use
  Company Number: US-BAXTER-2010BH002552

PATIENT
  Age: 60 Year
  Sex: Female

DRUGS (2)
  1. DIANEAL [Suspect]
     Indication: PERITONEAL DIALYSIS
     Route: 033
     Dates: start: 20080101, end: 20100122
  2. DIANEAL [Suspect]
     Route: 033
     Dates: start: 20100101, end: 20100204

REACTIONS (5)
  - ASPIRATION [None]
  - CARDIAC FAILURE CONGESTIVE [None]
  - CARDIO-RESPIRATORY ARREST [None]
  - PERITONITIS BACTERIAL [None]
  - VOMITING [None]
